FAERS Safety Report 20263481 (Version 1)
Quarter: 2021Q4

REPORT INFORMATION
  Report Type: Spontaneous
  Country: ES (occurrence: ES)
  Receive Date: 20211231
  Receipt Date: 20211231
  Transmission Date: 20220303
  Serious: Yes (Life-Threatening)
  Sender: FDA-Public Use
  Company Number: None

PATIENT
  Age: 1 Year
  Sex: Female

DRUGS (1)
  1. AMOXICILLIN [Suspect]
     Active Substance: AMOXICILLIN
     Indication: Ear infection
     Dosage: SP/8H, AMOXICILLIN 250 MG / 5 ML SOLUTION / ORAL SUSPENSION 120 ML 1 BOTTLE, 4.2 ML
     Route: 048
     Dates: start: 20201214, end: 20201220

REACTIONS (2)
  - Agranulocytosis [Recovered/Resolved]
  - Rash pruritic [Recovered/Resolved]

NARRATIVE: CASE EVENT DATE: 20201220
